FAERS Safety Report 6544740-7 (Version None)
Quarter: 2010Q1

REPORT INFORMATION
  Report Type: 
  Country: None (occurrence: None)
  Receive Date: 20100121
  Receipt Date: 20100115
  Transmission Date: 20100710
  Serious: Yes (Other)
  Sender: FDA-Public Use
  Company Number: FR-BRISTOL-MYERS SQUIBB COMPANY-14858112

PATIENT
  Age: 52 Year
  Sex: Male
  Weight: 76 kg

DRUGS (2)
  1. APROVEL [Suspect]
     Indication: HYPERTENSION
     Dates: start: 20051101, end: 20090801
  2. HYPERIUM [Interacting]
     Indication: HYPERTENSION
     Dosage: SINCE 3 OR 4 YEARS
     Dates: start: 20060801, end: 20090801

REACTIONS (4)
  - ASTHENIA [None]
  - DRUG INTERACTION [None]
  - HEADACHE [None]
  - TACHYCARDIA [None]
